FAERS Safety Report 23845373 (Version 1)
Quarter: 2024Q2

REPORT INFORMATION
  Report Type: Spontaneous
  Country: US (occurrence: US)
  Receive Date: 20240511
  Receipt Date: 20240511
  Transmission Date: 20240716
  Serious: Yes (Other)
  Sender: FDA-Public Use
  Company Number: US-DRL-USA-LIT/USA/24/0006878

PATIENT
  Age: 20 Year
  Sex: Female

DRUGS (15)
  1. CYCLOSPORINE [Suspect]
     Active Substance: CYCLOSPORINE
     Indication: Iridocyclitis
  2. CYCLOSPORINE [Suspect]
     Active Substance: CYCLOSPORINE
     Indication: Juvenile idiopathic arthritis
  3. ADALIMUMAB [Concomitant]
     Active Substance: ADALIMUMAB\ISOPROPYL ALCOHOL
     Indication: Iridocyclitis
  4. METHOTREXATE [Concomitant]
     Active Substance: METHOTREXATE
     Indication: Iridocyclitis
     Dosage: (25 MG/ML INJECTION ONCE WEEKLY)
  5. METHOTREXATE [Concomitant]
     Active Substance: METHOTREXATE
     Indication: Juvenile idiopathic arthritis
  6. ETANERCEPT [Concomitant]
     Active Substance: ETANERCEPT
     Indication: Iridocyclitis
     Dosage: 20 MG/ML INJECTION TWICE WEEKLY
  7. ETANERCEPT [Concomitant]
     Active Substance: ETANERCEPT
     Indication: Juvenile idiopathic arthritis
  8. MYCOPHENOLATE MOFETIL [Concomitant]
     Active Substance: MYCOPHENOLATE MOFETIL
     Indication: Iridocyclitis
  9. INFLIXIMAB [Concomitant]
     Active Substance: INFLIXIMAB
     Indication: Iridocyclitis
     Dosage: (5 MG/KG EVERY 4 WEEKS)
  10. ABATACEPT [Concomitant]
     Active Substance: ABATACEPT
     Indication: Iridocyclitis
  11. ANAKINRA [Concomitant]
     Active Substance: ANAKINRA
     Indication: Iridocyclitis
  12. TOCILIZUMAB [Concomitant]
     Active Substance: TOCILIZUMAB
     Indication: Iridocyclitis
  13. RITUXIMAB [Concomitant]
     Active Substance: RITUXIMAB
     Indication: Iridocyclitis
  14. HUMAN IMMUNOGLOBULIN G [Concomitant]
     Active Substance: HUMAN IMMUNOGLOBULIN G
     Indication: Iridocyclitis
  15. LOTEPREDNOL [Concomitant]
     Active Substance: LOTEPREDNOL
     Indication: Iridocyclitis

REACTIONS (2)
  - Drug ineffective for unapproved indication [Unknown]
  - Drug intolerance [Unknown]
